FAERS Safety Report 10089570 (Version 2)
Quarter: 2014Q2

REPORT INFORMATION
  Report Type: Spontaneous
  Country: JP (occurrence: JP)
  Receive Date: 20140421
  Receipt Date: 20140421
  Transmission Date: 20141212
  Serious: Yes (Hospitalization)
  Sender: FDA-Public Use
  Company Number: JP-PFIZER INC-2014095580

PATIENT
  Sex: 0

DRUGS (1)
  1. SALAZOPYRIN [Suspect]
     Indication: COLITIS ULCERATIVE
     Dosage: 500 MG, DAILY
     Route: 054

REACTIONS (1)
  - Patella fracture [Recovering/Resolving]
